FAERS Safety Report 22104361 (Version 5)
Quarter: 2023Q4

REPORT INFORMATION
  Report Type: Spontaneous
  Country: US (occurrence: US)
  Receive Date: 20230316
  Receipt Date: 20231228
  Transmission Date: 20240110
  Serious: No
  Sender: FDA-Public Use
  Company Number: US-PFIZER INC-PV202300046488

PATIENT
  Age: 72 Year
  Sex: Female
  Weight: 78.47 kg

DRUGS (3)
  1. IBRANCE [Suspect]
     Active Substance: PALBOCICLIB
     Indication: Breast cancer
     Dosage: 125 MG
  2. IBRANCE [Suspect]
     Active Substance: PALBOCICLIB
     Dosage: TAKE 1 (ONE) TABLET (100 MG TOTAL) DAILY WITH FOOD TAKE FOR 21 DAYS, THEN OFF FOR 7 DAYS
     Route: 048
  3. IBRANCE [Suspect]
     Active Substance: PALBOCICLIB
     Dosage: TAKE 1 (ONE) TABLET (75 MG TOTAL) DAILY WITH FOOD TAKE FOR 21 DAYS, THEN OFF FOR 7 DAYS
     Route: 048

REACTIONS (3)
  - Brain fog [Unknown]
  - White blood cell count decreased [Unknown]
  - Muscle spasms [Unknown]
